FAERS Safety Report 14951558 (Version 3)
Quarter: 2019Q4

REPORT INFORMATION
  Report Type: Spontaneous
  Country: FR (occurrence: FR)
  Receive Date: 20180530
  Receipt Date: 20191025
  Transmission Date: 20200122
  Serious: Yes (Death, Hospitalization)
  Sender: FDA-Public Use
  Company Number: FR-PFIZER INC-2018218709

PATIENT
  Age: 65 Year
  Sex: Male
  Weight: 52 kg

DRUGS (5)
  1. ETOPOSIDE. [Suspect]
     Active Substance: ETOPOSIDE
     Indication: TESTIS CANCER
     Dosage: 162 MG, UNK
     Route: 042
     Dates: start: 20160829, end: 20161030
  2. BLEOMYCINE BELLON [Suspect]
     Active Substance: BLEOMYCIN SULFATE
     Indication: TESTIS CANCER
     Dosage: 30 G, UNK
     Route: 042
     Dates: start: 20160829, end: 20161030
  3. CISPLATIN. [Suspect]
     Active Substance: CISPLATIN
     Indication: TESTIS CANCER
     Dosage: UNK
     Route: 042
     Dates: start: 20160829, end: 20161030
  4. GENTAMICIN. [Suspect]
     Active Substance: GENTAMICIN
     Dosage: UNSPECIFIED
     Dates: start: 20161106
  5. TAZOCILLINE [Suspect]
     Active Substance: PIPERACILLIN SODIUM\TAZOBACTAM SODIUM
     Dosage: UNSPECIFIED
     Dates: start: 20161106

REACTIONS (7)
  - Pneumonia aspiration [Fatal]
  - Vertigo [Not Recovered/Not Resolved]
  - Balance disorder [Not Recovered/Not Resolved]
  - Febrile bone marrow aplasia [Not Recovered/Not Resolved]
  - Renal failure [Recovered/Resolved with Sequelae]
  - Weight decreased [Not Recovered/Not Resolved]
  - Decreased appetite [Not Recovered/Not Resolved]

NARRATIVE: CASE EVENT DATE: 20160829
